FAERS Safety Report 22147221 (Version 1)
Quarter: 2023Q1

REPORT INFORMATION
  Report Type: Report from Study
  Country: ES (occurrence: ES)
  Receive Date: 20230328
  Receipt Date: 20230328
  Transmission Date: 20230417
  Serious: Yes (Other)
  Sender: FDA-Public Use
  Company Number: ES-MYLANLABS-2023M1032743

PATIENT

DRUGS (3)
  1. BORTEZOMIB [Suspect]
     Active Substance: BORTEZOMIB
     Indication: Plasma cell myeloma refractory
     Dosage: 1.3 MILLIGRAM/SQ. METER, EVERY 4 WEEKS, SC BOLUS INJECTION ADMINISTERED ON DAY 1, 4, 8 AND 11
     Route: 058
  2. DEXAMETHASONE [Suspect]
     Active Substance: DEXAMETHASONE
     Indication: Plasma cell myeloma refractory
     Dosage: 40 MILLIGRAM, EVERY 4 WEEKS, ADMINISTERED ON DAY 1, 8, 15 AND 22
     Route: 048
  3. PLITIDEPSIN [Suspect]
     Active Substance: PLITIDEPSIN
     Indication: Plasma cell myeloma refractory
     Dosage: 5 MILLIGRAM/SQ. METER, EVERY 4 WEEKS, IV INFUSION ADMINISTERED FOR 3H ON DAY 1 AND 15
     Route: 042

REACTIONS (1)
  - Fatigue [Unknown]
